FAERS Safety Report 5733686-X (Version None)
Quarter: 2008Q2

REPORT INFORMATION
  Report Type: 
  Country: None (occurrence: None)
  Receive Date: 20080509
  Receipt Date: 20080320
  Transmission Date: 20081010
  Serious: No
  Sender: FDA-Public Use
  Company Number: A0716727A

PATIENT
  Age: 74 Year
  Sex: Female

DRUGS (5)
  1. ALTABAX [Suspect]
     Indication: DRUG USE FOR UNKNOWN INDICATION
     Route: 061
     Dates: start: 20080317
  2. XANAX [Concomitant]
  3. WELLBUTRIN [Concomitant]
  4. PIROXICAM [Concomitant]
  5. FOSAMAX [Concomitant]

REACTIONS (3)
  - ADVERSE EVENT [None]
  - ERYTHEMA [None]
  - PRURITUS [None]
